FAERS Safety Report 11525804 (Version 3)
Quarter: 2015Q4

REPORT INFORMATION
  Report Type: Spontaneous
  Country: US (occurrence: US)
  Receive Date: 20150918
  Receipt Date: 20151006
  Transmission Date: 20160304
  Serious: Yes (Death, Hospitalization)
  Sender: FDA-Public Use
  Company Number: US-ACTELION-A-NJ2015-124088

PATIENT
  Age: 44 Year
  Sex: Female

DRUGS (3)
  1. REMODULIN [Concomitant]
     Active Substance: TREPROSTINIL
     Route: 042
  2. COUMADIN [Concomitant]
     Active Substance: WARFARIN SODIUM
  3. OPSUMIT [Suspect]
     Active Substance: MACITENTAN
     Indication: PULMONARY ARTERIAL HYPERTENSION
     Dosage: 10 MG, QD
     Route: 048
     Dates: start: 201401, end: 20150916

REACTIONS (15)
  - Dilatation ventricular [Fatal]
  - Right ventricular dysfunction [Fatal]
  - Circulatory collapse [Fatal]
  - Pulseless electrical activity [Not Recovered/Not Resolved]
  - Pulmonary arterial hypertension [Fatal]
  - Right ventricular systolic pressure increased [Fatal]
  - Disease progression [Fatal]
  - Cardiac arrest [Not Recovered/Not Resolved]
  - Brain natriuretic peptide increased [Fatal]
  - Lung disorder [Not Recovered/Not Resolved]
  - Torsade de pointes [Unknown]
  - Syncope [Fatal]
  - Balloon atrial septostomy [Unknown]
  - Pulmonary vascular resistance abnormality [Fatal]
  - Disease complication [Unknown]

NARRATIVE: CASE EVENT DATE: 20150903
